FAERS Safety Report 19518939 (Version 1)
Quarter: 2021Q3

REPORT INFORMATION
  Report Type: Spontaneous
  Country: US (occurrence: US)
  Receive Date: 20210712
  Receipt Date: 20210712
  Transmission Date: 20211014
  Serious: Yes (Other)
  Sender: FDA-Public Use
  Company Number: NVSC2021US151851

PATIENT
  Sex: Male

DRUGS (11)
  1. TETRACAINE HCL [Suspect]
     Active Substance: TETRACAINE HYDROCHLORIDE
     Indication: PREOPERATIVE CARE
     Dosage: UNK
     Route: 047
  2. CETAPHIL [SOFT SOAP] [Suspect]
     Active Substance: SOAP
     Indication: PREOPERATIVE CARE
     Dosage: UNK (SOFT SOAP)
     Route: 065
  3. DUOVISC [Suspect]
     Active Substance: CHONDROITIN SULFATE SODIUM NOS\HYALURONATE SODIUM
     Indication: PREOPERATIVE CARE
     Dosage: UNK
     Route: 065
  4. BSS [Suspect]
     Active Substance: CALCIUM CHLORIDE\MAGNESIUM CHLORIDE\POTASSIUM CHLORIDE\SODIUM ACETATE\SODIUM CHLORIDE\SODIUM CITRATE
     Dosage: UNK
     Route: 047
  5. CYCLOPENTOLATE HYDROCHLORIDE. [Suspect]
     Active Substance: CYCLOPENTOLATE HYDROCHLORIDE
     Indication: PREOPERATIVE CARE
     Dosage: UNK
     Route: 065
  6. PHENYLEPHRINE HYDROCHLORIDE. [Suspect]
     Active Substance: PHENYLEPHRINE HYDROCHLORIDE
     Indication: PREOPERATIVE CARE
     Dosage: UNK
     Route: 065
  7. TYLENOL [Suspect]
     Active Substance: ACETAMINOPHEN
     Indication: PREOPERATIVE CARE
     Dosage: UNK
     Route: 065
  8. VISCOAT [CHONDROITIN SULFATE SODIUM;HYALURONATE SODIUM] [Suspect]
     Active Substance: CHONDROITIN SULFATE SODIUM NOS\HYALURONATE SODIUM
     Indication: PREOPERATIVE CARE
     Dosage: UNK
     Route: 065
  9. BSS [Suspect]
     Active Substance: CALCIUM CHLORIDE\MAGNESIUM CHLORIDE\POTASSIUM CHLORIDE\SODIUM ACETATE\SODIUM CHLORIDE\SODIUM CITRATE
     Indication: CATARACT OPERATION
     Dosage: UNK
     Route: 047
  10. POVIDONE?IODINE. [Suspect]
     Active Substance: POVIDONE-IODINE
     Indication: SURGERY
     Dosage: UNK
     Route: 065
  11. LIDOCAINE. [Suspect]
     Active Substance: LIDOCAINE
     Indication: PREOPERATIVE CARE
     Dosage: UNK

REACTIONS (3)
  - Aqueous fibrin [Recovered/Resolved]
  - Toxic anterior segment syndrome [Recovered/Resolved]
  - Eye inflammation [Recovered/Resolved]
